FAERS Safety Report 25818917 (Version 1)
Quarter: 2025Q3

REPORT INFORMATION
  Report Type: Spontaneous
  Country: US (occurrence: None)
  Receive Date: 20250918
  Receipt Date: 20250918
  Transmission Date: 20251020
  Serious: Yes (Hospitalization)
  Sender: FDA-CTU
  Company Number: None

PATIENT
  Age: 57 Year
  Sex: Male
  Weight: 99.2 kg

DRUGS (1)
  1. ELUCIREM [Suspect]
     Active Substance: GADOPICLENOL
     Indication: Hepatic steatosis
     Route: 042
     Dates: start: 20250904, end: 20250904

REACTIONS (2)
  - Anaphylactic shock [None]
  - Contrast media reaction [None]

NARRATIVE: CASE EVENT DATE: 20250904
